FAERS Safety Report 13245921 (Version 1)
Quarter: 2017Q1

REPORT INFORMATION
  Report Type: Spontaneous
  Country: US (occurrence: US)
  Receive Date: 20170217
  Receipt Date: 20170217
  Transmission Date: 20170428
  Serious: Yes (Hospitalization)
  Sender: FDA-Public Use
  Company Number: US-RARE DISEASE THERAPEUTICS, INC.-1063266

PATIENT
  Age: 31 Year
  Sex: Female
  Weight: 63.5 kg

DRUGS (18)
  1. CALCIUM [Concomitant]
     Active Substance: CALCIUM
  2. VITAMIN B6 [Concomitant]
     Active Substance: PYRIDOXINE HYDROCHLORIDE
  3. GEODON [Concomitant]
     Active Substance: ZIPRASIDONE HYDROCHLORIDE\ZIPRASIDONE MESYLATE
  4. RISPERDAL [Concomitant]
     Active Substance: RISPERIDONE
  5. ASPRIN [Concomitant]
     Active Substance: ASPIRIN
  6. L-CARNITINE [Concomitant]
     Active Substance: LEVOCARNITINE
  7. REGULOID [Concomitant]
     Active Substance: PSYLLIUM HUSK
  8. PEG [Concomitant]
     Active Substance: POLYETHYLENE GLYCOLS
  9. VITAMIN B12 [Concomitant]
     Active Substance: CYANOCOBALAMIN
  10. SENNA-LAX [Concomitant]
     Active Substance: SENNOSIDES
  11. FLAXSEED [Concomitant]
     Active Substance: FLAX SEED
  12. MULTIVITAMIN [Concomitant]
     Active Substance: VITAMINS
  13. FOLIC ACID. [Concomitant]
     Active Substance: FOLIC ACID
  14. VITAMIN D [Concomitant]
     Active Substance: CHOLECALCIFEROL
  15. CARBAMAZEPINE. [Concomitant]
     Active Substance: CARBAMAZEPINE
  16. ZIPRASIDONE. [Concomitant]
     Active Substance: ZIPRASIDONE
  17. CYSTADANE [Suspect]
     Active Substance: BETAINE
     Dates: start: 20140709
  18. ALLERGY RELIEF [Concomitant]

REACTIONS (3)
  - Inappropriate schedule of drug administration [Unknown]
  - Overdose [Unknown]
  - Influenza [Recovered/Resolved]

NARRATIVE: CASE EVENT DATE: 20140709
